FAERS Safety Report 26212730 (Version 1)
Quarter: 2025Q4

REPORT INFORMATION
  Report Type: Spontaneous
  Country: JP (occurrence: JP)
  Receive Date: 20251230
  Receipt Date: 20251230
  Transmission Date: 20260117
  Serious: Yes (Other)
  Sender: IPSEN BIOPHARMACEUTICALS, INC.
  Company Number: JP-IPSEN Group, Research and Development-2025-32035

PATIENT
  Age: 73 Year
  Sex: Male

DRUGS (2)
  1. TAZVERIK [Suspect]
     Active Substance: TAZEMETOSTAT HYDROBROMIDE
     Indication: Follicular lymphoma
     Dosage: DOSE UNKNOWN
     Route: 048
  2. GANCICLOVIR [Suspect]
     Active Substance: GANCICLOVIR
     Indication: Cytomegalovirus chorioretinitis
     Dosage: DOSE UNKNOWN

REACTIONS (2)
  - Cytomegalovirus chorioretinitis [Unknown]
  - Myelosuppression [Unknown]

NARRATIVE: CASE EVENT DATE: 20251001
